FAERS Safety Report 18222622 (Version 1)
Quarter: 2020Q3

REPORT INFORMATION
  Report Type: Spontaneous
  Country: US (occurrence: US)
  Receive Date: 20200901
  Receipt Date: 20200901
  Transmission Date: 20201103
  Serious: Yes (Other)
  Sender: FDA-Public Use
  Company Number: None

PATIENT
  Age: 77 Year
  Sex: Male
  Weight: 52.6 kg

DRUGS (3)
  1. LOSARTAN 50MG DAILY [Concomitant]
  2. MAVYRET [Suspect]
     Active Substance: GLECAPREVIR\PIBRENTASVIR
     Indication: HEPATITIS C
     Route: 048
     Dates: start: 20200107, end: 20200303
  3. CHOLECALCIFEROL 2000IU DAILY [Concomitant]

REACTIONS (1)
  - Hepatitis B reactivation [None]

NARRATIVE: CASE EVENT DATE: 20200716
